FAERS Safety Report 15955628 (Version 1)
Quarter: 2019Q1

REPORT INFORMATION
  Report Type: Spontaneous
  Country: US (occurrence: US)
  Receive Date: 20190120
  Receipt Date: 20190120
  Transmission Date: 20190417
  Serious: No
  Sender: FDA-Public Use
  Company Number: None

PATIENT
  Age: 43 Year
  Sex: Female

DRUGS (1)
  1. MYCOPHENOLATE MOFETIL 500MG TABLET [Suspect]
     Active Substance: MYCOPHENOLATE MOFETIL
     Route: 048
     Dates: start: 201705

REACTIONS (4)
  - Therapy cessation [None]
  - Klebsiella infection [None]
  - Kidney infection [None]
  - Gastric bypass [None]

NARRATIVE: CASE EVENT DATE: 20190120
